FAERS Safety Report 17840650 (Version 1)
Quarter: 2020Q2

REPORT INFORMATION
  Report Type: Spontaneous
  Country: US (occurrence: US)
  Receive Date: 20200529
  Receipt Date: 20200529
  Transmission Date: 20200714
  Serious: Yes (Death)
  Sender: FDA-Public Use
  Company Number: None

PATIENT
  Sex: Male

DRUGS (12)
  1. LUPRON DEPOT [Suspect]
     Active Substance: LEUPROLIDE ACETATE
     Indication: PROSTATE CANCER
     Dosage: ?          OTHER FREQUENCY:EVERY 6 MONTHS;?
     Route: 030
     Dates: start: 20191129
  2. ESCITALOPRAM [Concomitant]
     Active Substance: ESCITALOPRAM OXALATE
  3. LOSARTAN. [Concomitant]
     Active Substance: LOSARTAN
  4. PERSERVISION [Concomitant]
  5. ATORVASTATIN [Concomitant]
     Active Substance: ATORVASTATIN
  6. FOLBIC [Concomitant]
     Active Substance: CYANOCOBALAMIN\FOLIC ACID\PYRIDOXINE
  7. VITAMIN D3 [Concomitant]
     Active Substance: CHOLECALCIFEROL
  8. ASPIRIN. [Concomitant]
     Active Substance: ASPIRIN
  9. ELIQUIS [Concomitant]
     Active Substance: APIXABAN
  10. AMLODIPINE [Concomitant]
     Active Substance: AMLODIPINE BESYLATE
  11. METOPROLOL. [Concomitant]
     Active Substance: METOPROLOL
  12. STOOL SOFTENER (DOCUSATE) [Concomitant]
     Active Substance: DOCUSATE

REACTIONS (1)
  - Death [None]
